FAERS Safety Report 12390699 (Version 1)
Quarter: 2016Q2

REPORT INFORMATION
  Report Type: Report from Study
  Country: CO (occurrence: CO)
  Receive Date: 20160520
  Receipt Date: 20160520
  Transmission Date: 20160815
  Serious: Yes (Other)
  Sender: FDA-Public Use
  Company Number: CO-ABBVIE-16K-036-1619446-00

PATIENT
  Age: 32 Year
  Sex: Male
  Weight: 103 kg

DRUGS (4)
  1. HUMIRA [Suspect]
     Active Substance: ADALIMUMAB
     Indication: PSORIASIS
     Dosage: LOAD DOSE
     Route: 058
     Dates: start: 20130114, end: 20130114
  2. STELARA [Suspect]
     Active Substance: USTEKINUMAB
     Indication: PRODUCT USED FOR UNKNOWN INDICATION
     Route: 065
  3. HUMIRA [Suspect]
     Active Substance: ADALIMUMAB
     Route: 058
     Dates: start: 201301, end: 201511
  4. HUMIRA [Suspect]
     Active Substance: ADALIMUMAB
     Route: 058
     Dates: start: 20160407, end: 20160407

REACTIONS (9)
  - Papule [Not Recovered/Not Resolved]
  - Rash [Unknown]
  - Erythema [Unknown]
  - Granuloma skin [Unknown]
  - Cyst rupture [Unknown]
  - Pruritus [Unknown]
  - Erythema [Not Recovered/Not Resolved]
  - Drug ineffective [Unknown]
  - Dermal cyst [Unknown]

NARRATIVE: CASE EVENT DATE: 201511
